FAERS Safety Report 9916159 (Version 2)
Quarter: 2014Q1

REPORT INFORMATION
  Report Type: Report from Study
  Country: JP (occurrence: JP)
  Receive Date: 20140221
  Receipt Date: 20140326
  Transmission Date: 20141002
  Serious: Yes (Death)
  Sender: FDA-Public Use
  Company Number: JP-ROCHE-1353806

PATIENT
  Age: 36 Year
  Sex: Female
  Weight: 56 kg

DRUGS (3)
  1. BEVACIZUMAB [Suspect]
     Indication: GLIOBLASTOMA
     Route: 041
     Dates: start: 20140120, end: 20140120
  2. BEVACIZUMAB [Suspect]
     Dosage: DOSAGE IS UNCERTAIN.
     Route: 041
     Dates: start: 20140206, end: 20140206
  3. PREDNISOLONE [Concomitant]
     Indication: PROPHYLAXIS
     Route: 048
     Dates: start: 20140118, end: 20140212

REACTIONS (4)
  - Disease progression [Fatal]
  - Altered state of consciousness [Fatal]
  - Apnoeic attack [Fatal]
  - Dizziness [Recovering/Resolving]
